FAERS Safety Report 5611456-0 (Version None)
Quarter: 2008Q1

REPORT INFORMATION
  Report Type: 
  Country: None (occurrence: None)
  Receive Date: 20080201
  Receipt Date: 20080123
  Transmission Date: 20080703
  Serious: Yes (Hospitalization)
  Sender: FDA-Public Use
  Company Number: US-ELI_LILLY_AND_COMPANY-US200801004942

PATIENT
  Sex: Female

DRUGS (12)
  1. BYETTA [Suspect]
     Dosage: 5 UG, 2/D
     Route: 058
     Dates: start: 20070901, end: 20080112
  2. BYETTA [Suspect]
     Dosage: 5 UG, EACH MORNING
     Route: 058
     Dates: start: 20080113, end: 20080115
  3. BYETTA [Suspect]
     Dosage: 5 UG, 2/D
     Route: 058
     Dates: start: 20080115
  4. DIOVAN [Concomitant]
     Indication: HYPERTENSION
     Dosage: UNK, DAILY (1/D)
     Route: 048
  5. LISINOPRIL [Concomitant]
     Indication: HYPERTENSION
     Dosage: 40 MG, DAILY (1/D)
     Route: 048
  6. VISTARIL /00058402/ [Concomitant]
     Indication: HYPERSENSITIVITY
     Dosage: 25 MG, DAILY (1/D)
     Route: 048
  7. SIMVASTATIN [Concomitant]
     Indication: BLOOD CHOLESTEROL
     Dosage: 4 MG, DAILY (1/D)
     Route: 048
  8. METFORMIN /00082702/ [Concomitant]
     Dosage: 850 MG, DAILY (1/D)
     Route: 048
     Dates: end: 20080110
  9. METFORMIN /00082702/ [Concomitant]
     Dosage: 850 MG, DAILY (1/D)
     Route: 048
     Dates: start: 20080115
  10. PROTONIX /01263202/ [Concomitant]
     Indication: GASTROOESOPHAGEAL REFLUX DISEASE
     Dosage: 40 MG, DAILY (1/D)
     Route: 048
  11. ASPIRIN [Concomitant]
     Dosage: 243 MG, DAILY (1/D)
     Route: 048
  12. CENTRUM SILVER [Concomitant]
     Dosage: UNK, DAILY (1/D)
     Route: 048

REACTIONS (5)
  - ANAEMIA [None]
  - ARTHROPATHY [None]
  - BLOOD GLUCOSE INCREASED [None]
  - BLOOD PRESSURE INCREASED [None]
  - PAIN [None]
